FAERS Safety Report 7005012-X (Version None)
Quarter: 2010Q3

REPORT INFORMATION
  Report Type: 
  Country: None (occurrence: None)
  Receive Date: 20100920
  Receipt Date: 20100920
  Transmission Date: 20110219
  Serious: Yes (Hospitalization)
  Sender: FDA-Public Use
  Company Number: None

PATIENT
  Age: 62 Year
  Sex: Male
  Weight: 87 kg

DRUGS (2)
  1. VALSARTAN [Suspect]
     Indication: HYPERTENSION
     Dosage: 160 MG EVERY DAY PO
     Route: 048
     Dates: start: 20050601, end: 20100717
  2. ETODOLAC [Suspect]
     Indication: PAIN
     Dosage: 400 MG TID PO
     Route: 048
     Dates: start: 20040806, end: 20100717

REACTIONS (9)
  - ANAEMIA MACROCYTIC [None]
  - BENIGN PROSTATIC HYPERPLASIA [None]
  - ESCHERICHIA URINARY TRACT INFECTION [None]
  - HYPERTENSION [None]
  - METABOLIC ACIDOSIS [None]
  - OBSTRUCTIVE UROPATHY [None]
  - OEDEMA PERIPHERAL [None]
  - RENAL FAILURE ACUTE [None]
  - SKIN CHAPPED [None]
